FAERS Safety Report 23034667 (Version 3)
Quarter: 2024Q3

REPORT INFORMATION
  Report Type: Spontaneous
  Country: US (occurrence: US)
  Receive Date: 20231005
  Receipt Date: 20240711
  Transmission Date: 20241016
  Serious: Yes (Other)
  Sender: BRISTOL MYERS SQUIBB
  Company Number: US-BRISTOL-MYERS SQUIBB COMPANY-2023-141352

PATIENT
  Age: 68 Year
  Sex: Male
  Weight: 105.5 kg

DRUGS (35)
  1. POMALYST [Suspect]
     Active Substance: POMALIDOMIDE
     Indication: Plasma cell myeloma
     Dosage: DAILY FOR 21 DAYS
     Route: 048
     Dates: start: 20230126
  2. POMALYST [Suspect]
     Active Substance: POMALIDOMIDE
     Route: 048
     Dates: start: 20230202
  3. POMALYST [Suspect]
     Active Substance: POMALIDOMIDE
     Dosage: TAKE 1 CAPSULE PO QD FOR 21 DAYS FOLLOWED BY A 7 DAY REST PERIOD EVERY 28 DAYS
     Route: 048
     Dates: start: 20230126
  4. ISATUXIMAB [Concomitant]
     Active Substance: ISATUXIMAB
     Indication: Product used for unknown indication
     Dosage: 100MG/ 5 ML
  5. ASPIRIN [Concomitant]
     Active Substance: ASPIRIN
     Indication: Product used for unknown indication
  6. FISH OIL [Concomitant]
     Active Substance: FISH OIL
     Indication: Product used for unknown indication
  7. MECLIZINE [Concomitant]
     Active Substance: MECLIZINE HYDROCHLORIDE
     Indication: Product used for unknown indication
  8. VITAMIN D3 [Concomitant]
     Active Substance: CHOLECALCIFEROL
     Indication: Product used for unknown indication
     Dosage: UNIT
  9. DIPHENHYDRAMINE [Concomitant]
     Active Substance: DIPHENHYDRAMINE
  10. ACETAMINOPHEN [Concomitant]
     Active Substance: ACETAMINOPHEN
  11. FOLIC ACID [Concomitant]
     Active Substance: FOLIC ACID
  12. VITAMIN B12 [Concomitant]
     Active Substance: CYANOCOBALAMIN
     Dosage: 60^S
  13. LUTEIN + [Concomitant]
  14. ZINC [Concomitant]
     Active Substance: ZINC
     Dosage: N/M
  15. VITAMINS [Concomitant]
     Active Substance: VITAMINS
  16. VITAMIN D3 [Concomitant]
     Active Substance: CHOLECALCIFEROL
  17. BRIVIACT [Concomitant]
     Active Substance: BRIVARACETAM
  18. OFLOXACIN [Concomitant]
     Active Substance: OFLOXACIN
     Dosage: OPHTHALMIC SOLUTION
     Route: 047
  19. PREDNISOLONE [Concomitant]
     Active Substance: PREDNISOLONE
     Dosage: OPHTHALMIC
     Route: 047
  20. KETOROLAC [Concomitant]
     Active Substance: KETOROLAC TROMETHAMINE
     Dosage: OPHTHALMIC SOLUTION
     Route: 047
  21. TAMSULOSIN [Concomitant]
     Active Substance: TAMSULOSIN
  22. ATORVASTATIN [Concomitant]
     Active Substance: ATORVASTATIN
  23. CLOPIDOGREL [Concomitant]
     Active Substance: CLOPIDOGREL BISULFATE
  24. VAZALORE [Concomitant]
     Active Substance: ASPIRIN
  25. METOPROLOL TARTRATE [Concomitant]
     Active Substance: METOPROLOL TARTRATE
  26. POTASSIUM [Concomitant]
     Active Substance: POTASSIUM
  27. DEXAMETHASONE [Concomitant]
     Active Substance: DEXAMETHASONE
  28. FUROSEMIDE [Concomitant]
     Active Substance: FUROSEMIDE
  29. ACYCLOVIR [Concomitant]
     Active Substance: ACYCLOVIR
  30. CITALOPRAM [Concomitant]
     Active Substance: CITALOPRAM\CITALOPRAM HYDROBROMIDE
  31. HYDROCODONE [Concomitant]
     Active Substance: HYDROCODONE
  32. ALLOPURINOL [Concomitant]
     Active Substance: ALLOPURINOL
     Dosage: 5/325 MG
  33. OMEPRAZOLE [Concomitant]
     Active Substance: OMEPRAZOLE
  34. NIFEDIPINE [Concomitant]
     Active Substance: NIFEDIPINE
  35. CALCIUM\ERGOCALCIFEROL [Concomitant]
     Active Substance: CALCIUM\ERGOCALCIFEROL

REACTIONS (6)
  - Peripheral swelling [Unknown]
  - Anaemia [Unknown]
  - Fatigue [Unknown]
  - Diarrhoea [Unknown]
  - Cataract [Unknown]
  - Blood iron decreased [Unknown]

NARRATIVE: CASE EVENT DATE: 20231003
